FAERS Safety Report 15988767 (Version 2)
Quarter: 2019Q1

REPORT INFORMATION
  Report Type: Spontaneous
  Country: TR (occurrence: TR)
  Receive Date: 20190221
  Receipt Date: 20190307
  Transmission Date: 20190418
  Serious: Yes (Congenital Anomaly, Other)
  Sender: FDA-Public Use
  Company Number: TR-SUN PHARMACEUTICAL INDUSTRIES LTD-2019RR-199657

PATIENT
  Sex: Male

DRUGS (10)
  1. KEPPRA [Suspect]
     Active Substance: LEVETIRACETAM
     Indication: STATUS EPILEPTICUS
     Dosage: 1500 MILLIGRAM
     Route: 064
  2. BENVIDA [Suspect]
     Active Substance: LACOSAMIDE
     Indication: STATUS EPILEPTICUS
     Dosage: UP TO 600 MG/D
     Route: 064
  3. THIOPENTAL [Suspect]
     Active Substance: THIOPENTAL
     Indication: STATUS EPILEPTICUS
     Dosage: UP TO 1.5 MG/KG/H
     Route: 064
  4. MIDAZOLAM [Suspect]
     Active Substance: MIDAZOLAM HYDROCHLORIDE
     Dosage: 0.6 MG/KG/H
     Route: 064
  5. PREDNOL (METHYLPREDNISOLONE) [Suspect]
     Active Substance: METHYLPREDNISOLONE
     Indication: STATUS EPILEPTICUS
     Dosage: 1000 MILLIGRAM, DAILY
     Route: 064
  6. PROPOFOL. [Suspect]
     Active Substance: PROPOFOL
     Indication: STATUS EPILEPTICUS
     Dosage: 1.7 MG/KG/H
     Route: 064
  7. KEPPRA [Suspect]
     Active Substance: LEVETIRACETAM
     Dosage: UP TO 2000 MG/D
     Route: 064
  8. MIDAZOLAM [Suspect]
     Active Substance: MIDAZOLAM HYDROCHLORIDE
     Indication: STATUS EPILEPTICUS
     Dosage: 10 MILLIGRAM
     Route: 064
  9. TOPAMAX [Suspect]
     Active Substance: TOPIRAMATE
     Indication: STATUS EPILEPTICUS
     Dosage: UP TO 600 MG/D
     Route: 064
  10. PROPOFOL. [Suspect]
     Active Substance: PROPOFOL
     Dosage: UP TO 4 MG/KG/H
     Route: 064

REACTIONS (4)
  - Cyanosis neonatal [Unknown]
  - Dyspnoea [Unknown]
  - Periventricular haemorrhage neonatal [Unknown]
  - Foetal exposure during pregnancy [Unknown]
